FAERS Safety Report 23627562 (Version 1)
Quarter: 2024Q1

REPORT INFORMATION
  Report Type: Spontaneous
  Country: GB (occurrence: GB)
  Receive Date: 20240313
  Receipt Date: 20240313
  Transmission Date: 20240410
  Serious: Yes (Other)
  Sender: FDA-Public Use
  Company Number: None

PATIENT
  Age: 63 Year
  Sex: Male
  Weight: 99 kg

DRUGS (18)
  1. AMLODIPINE [Suspect]
     Active Substance: AMLODIPINE BESYLATE
     Route: 065
  2. RAMIPRIL [Concomitant]
     Active Substance: RAMIPRIL
     Dates: start: 20231010
  3. OMALIZUMAB [Concomitant]
     Active Substance: OMALIZUMAB
     Dates: start: 20240116
  4. DOXYCYCLINE [Concomitant]
     Active Substance: DOXYCYCLINE
     Dosage: NOW THEN ONE DAILY, DURATION: 7 DAYS
     Dates: start: 20240226, end: 20240304
  5. FLUTICASONE PROPIONATE [Concomitant]
     Active Substance: FLUTICASONE PROPIONATE
     Dosage: SPRAYS IN EACH NOSTRIL REDUC...
     Dates: start: 20230825
  6. ALBUTEROL [Concomitant]
     Active Substance: ALBUTEROL
     Dosage: TIME INTERVAL: AS NECESSARY: 1 OR 2 DOSES
     Dates: start: 20230825
  7. THEOPHYLLINE ANHYDROUS [Concomitant]
     Active Substance: THEOPHYLLINE ANHYDROUS
     Dates: start: 20230825
  8. WARFARIN SODIUM [Concomitant]
     Active Substance: WARFARIN SODIUM
     Dosage: TO BE TAKEN AT 6PM EACH DAY AS INSTRUCTED BY TH...
     Dates: start: 20231102
  9. SILDENAFIL [Concomitant]
     Active Substance: SILDENAFIL
     Dosage: USE AS DIRECTED
     Dates: start: 20210915
  10. NITROGLYCERIN [Concomitant]
     Active Substance: NITROGLYCERIN
     Dosage: TIME INTERVAL: AS NECESSARY: SPRAY ONE PUFF UNDER THE TONGUE WHEN REQUIRED F...
     Dates: start: 20240124
  11. AZITHROMYCIN [Concomitant]
     Active Substance: AZITHROMYCIN
     Dosage: TIME INTERVAL: 0.33333333 WEEKS: ON MONDAYS, ...
     Dates: start: 20240115
  12. PREDNISOLONE [Concomitant]
     Active Substance: PREDNISOLONE
     Indication: Asthma
     Dosage: IN THE MORNING FOR SEVEN DAYS
     Dates: start: 20230825
  13. MONTELUKAST [Concomitant]
     Active Substance: MONTELUKAST SODIUM
     Indication: Asthma
     Dosage: NIGHT
     Dates: start: 20230825
  14. SYMBICORT [Concomitant]
     Active Substance: BUDESONIDE\FORMOTEROL FUMARATE DIHYDRATE
     Dosage: QUICKLY AND DEEPLY
     Dates: start: 20230825
  15. SPIRIVA [Concomitant]
     Active Substance: TIOTROPIUM BROMIDE MONOHYDRATE
     Dosage: PUFFS
     Dates: start: 20230825
  16. ALBUTEROL [Concomitant]
     Active Substance: ALBUTEROL
     Dosage: DURATION: 4 DAYS
     Dates: start: 20231207, end: 20231211
  17. FEBUXOSTAT [Concomitant]
     Active Substance: FEBUXOSTAT
     Dates: start: 20220104
  18. LANSOPRAZOLE [Concomitant]
     Active Substance: LANSOPRAZOLE
     Dates: start: 20230825

REACTIONS (1)
  - Circulatory collapse [Unknown]
